FAERS Safety Report 14425342 (Version 3)
Quarter: 2018Q1

REPORT INFORMATION
  Report Type: Report from Study
  Country: DE (occurrence: DE)
  Receive Date: 20180123
  Receipt Date: 20180220
  Transmission Date: 20180509
  Serious: Yes (Hospitalization)
  Sender: FDA-Public Use
  Company Number: DE-PFIZER INC-2018015167

PATIENT
  Age: 63 Year
  Sex: Female

DRUGS (5)
  1. AVELUMAB [Suspect]
     Active Substance: AVELUMAB
     Indication: COLORECTAL CANCER METASTATIC
     Dosage: 670 MG, ONCE EVERY TWO WEEKS
     Route: 042
     Dates: start: 20180103, end: 20180103
  2. LEUCOVORIN. [Suspect]
     Active Substance: LEUCOVORIN
     Indication: COLORECTAL CANCER METASTATIC
     Dosage: 674 MG, CYCLIC
     Route: 042
     Dates: start: 20171220, end: 20180103
  3. CETUXIMAB. [Suspect]
     Active Substance: CETUXIMAB
     Indication: COLORECTAL CANCER METASTATIC
     Dosage: 421 MG, WEEKLY
     Route: 042
     Dates: start: 20171220, end: 20180103
  4. OXALIPLATIN. [Suspect]
     Active Substance: OXALIPLATIN
     Indication: COLORECTAL CANCER METASTATIC
     Dosage: 142 MG, CYCLIC
     Route: 042
     Dates: start: 20171220, end: 20180103
  5. 5-FU [Suspect]
     Active Substance: FLUOROURACIL
     Indication: COLORECTAL CANCER METASTATIC
     Dosage: 4050 MG, CYCLIC
     Route: 042
     Dates: start: 20171220, end: 20180103

REACTIONS (2)
  - Device related infection [Recovered/Resolved]
  - Viral infection [Recovered/Resolved]

NARRATIVE: CASE EVENT DATE: 20180104
